FAERS Safety Report 9939497 (Version 1)
Quarter: 2014Q1

REPORT INFORMATION
  Report Type: Report from Study
  Country: US (occurrence: US)
  Receive Date: 20140303
  Receipt Date: 20140303
  Transmission Date: 20141002
  Serious: No
  Sender: FDA-Public Use
  Company Number: US-ABBVIE-13P-163-1032475-00

PATIENT
  Age: 30 Year
  Sex: Female

DRUGS (5)
  1. HUMIRA [Suspect]
     Indication: COLITIS ULCERATIVE
     Route: 058
  2. HUMIRA [Suspect]
     Dosage: DAY 1, 4 PENS
     Route: 058
     Dates: start: 201212
  3. HUMIRA [Suspect]
     Dosage: DAY 15, 2 PENS
     Route: 058
  4. HUMIRA [Suspect]
     Dosage: MAINTENANCE DOSE
     Route: 058
  5. GENERESS FE [Concomitant]
     Indication: PRODUCT USED FOR UNKNOWN INDICATION

REACTIONS (3)
  - Vomiting [Unknown]
  - Diarrhoea [Recovered/Resolved]
  - Perineal injury [Recovered/Resolved]
